FAERS Safety Report 11399797 (Version 3)
Quarter: 2015Q4

REPORT INFORMATION
  Report Type: Spontaneous
  Country: DE (occurrence: DE)
  Receive Date: 20150820
  Receipt Date: 20151020
  Transmission Date: 20160304
  Serious: Yes (Other)
  Sender: FDA-Public Use
  Company Number: DE-NOVOPROD-459634

PATIENT
  Age: 61 Year
  Sex: Female

DRUGS (4)
  1. PROTAPHANE [Suspect]
     Active Substance: INSULIN HUMAN
     Dosage: 18-20 IE IN THE EVENING
     Route: 065
     Dates: start: 20150802
  2. PROTAPHANE [Suspect]
     Active Substance: INSULIN HUMAN
     Dosage: UNK
  3. PROTAPHANE [Suspect]
     Active Substance: INSULIN HUMAN
     Indication: TYPE 2 DIABETES MELLITUS
     Dosage: 18-20 IE IN THE EVENING
     Route: 065
     Dates: start: 20150731
  4. PROTAPHANE [Suspect]
     Active Substance: INSULIN HUMAN
     Dosage: UNK
     Route: 065

REACTIONS (4)
  - Liquid product physical issue [Unknown]
  - Product odour abnormal [Unknown]
  - Device failure [Unknown]
  - Injection site abscess [Unknown]

NARRATIVE: CASE EVENT DATE: 20150801
